FAERS Safety Report 6746873-9 (Version None)
Quarter: 2010Q2

REPORT INFORMATION
  Report Type: 
  Country: None (occurrence: None)
  Receive Date: 20100528
  Receipt Date: 20100202
  Transmission Date: 20101027
  Serious: No
  Sender: FDA-Public Use
  Company Number: US-ASTRAZENECA-2010SE06065

PATIENT
  Sex: Female

DRUGS (1)
  1. PRILOSEC OTC [Suspect]
     Route: 048
     Dates: start: 20040101

REACTIONS (3)
  - INCORRECT DRUG ADMINISTRATION DURATION [None]
  - MALAISE [None]
  - PRODUCT TASTE ABNORMAL [None]
